FAERS Safety Report 6896655-2 (Version None)
Quarter: 2010Q3

REPORT INFORMATION
  Report Type: 
  Country: None (occurrence: None)
  Receive Date: 20100802
  Receipt Date: 20070108
  Transmission Date: 20110219
  Serious: No
  Sender: FDA-Public Use
  Company Number: US-PFIZER INC-2007003397

PATIENT
  Sex: Male
  Weight: 99.79 kg

DRUGS (11)
  1. LYRICA [Suspect]
     Indication: MUSCLE SPASMS
     Dates: start: 20060101
  2. NEURONTIN [Suspect]
     Indication: MUSCLE SPASMS
     Dates: start: 20060101, end: 20070101
  3. TOPROL-XL [Concomitant]
  4. LIPITOR [Concomitant]
  5. PRILOSEC [Concomitant]
  6. ALEVE (CAPLET) [Concomitant]
  7. ACETYLSALICYLIC ACID SRT [Concomitant]
  8. VITAMINS [Concomitant]
  9. CITALOPRAM HYDROBROMIDE [Concomitant]
  10. BACLOFEN [Concomitant]
  11. AZATHIOPRINE [Concomitant]

REACTIONS (2)
  - DRUG INEFFECTIVE [None]
  - NEPHROLITHIASIS [None]
